FAERS Safety Report 7228158-X (Version None)
Quarter: 2011Q1

REPORT INFORMATION
  Report Type: 
  Country: None (occurrence: None)
  Receive Date: 20110106
  Receipt Date: 20101221
  Transmission Date: 20110831
  Serious: Yes (Hospitalization)
  Sender: FDA-Public Use
  Company Number: 2010CP000337

PATIENT
  Age: 66 Year
  Sex: Male

DRUGS (4)
  1. PRADAXA (DABIGATRAN ETEXILATE MESILATE) [Suspect]
     Indication: PROPHYLAXIS
     Dosage: 200 MILLIGRAM; 1 DAY
  2. TRAMADOL HCL [Suspect]
     Dosage: 1 DOSAGE FORM; 1/1 DAY; PO
     Route: 048
     Dates: start: 20101025, end: 20101107
  3. PERFALGAN (PARACETAMOL) [Suspect]
     Indication: ANALGESIC THERAPY
     Dosage: 1 GM; 4/1 DAY; IV
     Route: 042
     Dates: start: 20101025
  4. TARDYFERON (FERROUS SULFATE) (NO PREF. NAME) [Suspect]
     Dosage: 1 DOSAGE FORM; 1 DAY; PO
     Route: 048
     Dates: start: 20101025

REACTIONS (3)
  - PANCREATITIS ACUTE [None]
  - CHOLESTASIS [None]
  - CYTOLYTIC HEPATITIS [None]
